FAERS Safety Report 21219407 (Version 3)
Quarter: 2022Q4

REPORT INFORMATION
  Report Type: Report from Study
  Country: DE (occurrence: DE)
  Receive Date: 20220817
  Receipt Date: 20221020
  Transmission Date: 20230113
  Serious: Yes (Death, Hospitalization, Other)
  Sender: FDA-Public Use
  Company Number: DE-AMGEN-DEUCT2022138064

PATIENT
  Age: 57 Year
  Sex: Female
  Weight: 50 kg

DRUGS (17)
  1. PANITUMUMAB [Suspect]
     Active Substance: PANITUMUMAB
     Indication: Colorectal cancer metastatic
     Dosage: 6 MILLIGRAM/KILOGRAM, QD
     Route: 065
     Dates: start: 20220510, end: 20220607
  2. TIPIRACIL HYDROCHLORIDE\TRIFLURIDINE [Suspect]
     Active Substance: TIPIRACIL HYDROCHLORIDE\TRIFLURIDINE
     Indication: Colorectal cancer metastatic
     Dosage: 35 MILLIGRAM/SQ. METER, QD
     Route: 065
     Dates: start: 20220510, end: 20220607
  3. PANTOPRAZOLE SODIUM [Concomitant]
     Active Substance: PANTOPRAZOLE SODIUM
     Indication: Prophylaxis
     Dosage: 40 MILLIGRAM, QD
     Route: 048
     Dates: start: 20220424
  4. DEXAMETHASONE [Concomitant]
     Active Substance: DEXAMETHASONE
     Indication: Nausea
     Dosage: 4 MILLIGRAM, BID
     Route: 048
     Dates: start: 20220510, end: 20220519
  5. DEXAMETHASONE [Concomitant]
     Active Substance: DEXAMETHASONE
     Dosage: 2 MILLIGRAM, BID
     Route: 048
     Dates: start: 20220520
  6. NADROPARIN CALCIUM [Concomitant]
     Active Substance: NADROPARIN CALCIUM
     Indication: Thrombosis prophylaxis
     Dosage: 2850 INTERNATIONAL UNIT, QD
     Route: 058
     Dates: start: 20220507, end: 20220519
  7. ONDANSETRON [Concomitant]
     Active Substance: ONDANSETRON
     Indication: Nausea
     Dosage: 4 MILLIGRAM, AS NEEDED
     Route: 060
     Dates: start: 20220507
  8. MCP [Concomitant]
     Active Substance: METOCLOPRAMIDE HYDROCHLORIDE
     Indication: Nausea
     Dosage: 10 MILLIGRAM, AS NEEDED
     Route: 048
     Dates: start: 20220507
  9. MOVICOL [Concomitant]
     Active Substance: POLYETHYLENE GLYCOL 3350\POTASSIUM CHLORIDE\SODIUM BICARBONATE\SODIUM CHLORIDE
     Indication: Prophylaxis
     Dosage: 1, AS NEEDED
     Route: 048
     Dates: start: 20220507
  10. OLIMEL [Concomitant]
     Active Substance: AMINO ACIDS\DEXTROSE\SOYBEAN OIL
     Indication: Prophylaxis
     Dosage: 1500 MILLILITER, QD
     Route: 042
     Dates: start: 20220513, end: 20220515
  11. Jonosteril [Concomitant]
     Indication: Prophylaxis
     Dosage: 500 MILLILITER, QD
     Route: 042
     Dates: start: 20220507, end: 20220515
  12. CALCIUM CHLORIDE\MAGNESIUM CHLORIDE\POTASSIUM CHLORIDE\SODIUM ACETATE\ [Concomitant]
     Active Substance: CALCIUM CHLORIDE\MAGNESIUM CHLORIDE\POTASSIUM CHLORIDE\SODIUM ACETATE\SODIUM CHLORIDE
     Indication: Dehydration
     Dosage: 500 MILLILITER, ONCE
     Route: 042
     Dates: start: 20220513, end: 20220513
  13. AMLODIPINE [Concomitant]
     Active Substance: AMLODIPINE BESYLATE
     Indication: Hypertension
     Dosage: 5 MILLIGRAM, AS NEEDED (UPTO TWICE DAILY)
     Route: 048
     Dates: start: 20220508
  14. RAMIPRIL [Concomitant]
     Active Substance: RAMIPRIL
     Indication: Hypertension
     Dosage: 2.5 MILLIGRAM, QD
     Route: 048
     Dates: start: 20220508
  15. ZOPICLONE [Concomitant]
     Active Substance: ZOPICLONE
     Indication: Somnolence
     Dosage: 7.5 MILLIGRAM, AS NEEDED
     Route: 048
     Dates: start: 202204
  16. MINOCYCLINE [Concomitant]
     Active Substance: MINOCYCLINE HYDROCHLORIDE
     Indication: Prophylaxis
     Dosage: 50 MILLIGRAM, BID
     Route: 048
  17. ZOMETA [Concomitant]
     Active Substance: ZOLEDRONIC ACID
     Indication: Prophylaxis
     Dosage: 4 MILLIGRAM, ONCE
     Route: 042
     Dates: start: 20220518, end: 20220518

REACTIONS (4)
  - Colorectal cancer metastatic [Fatal]
  - Tumour pain [Not Recovered/Not Resolved]
  - Device related infection [Not Recovered/Not Resolved]
  - General physical health deterioration [Not Recovered/Not Resolved]

NARRATIVE: CASE EVENT DATE: 20220516
